FAERS Safety Report 9375246 (Version 2)
Quarter: 2015Q3

REPORT INFORMATION
  Report Type: Spontaneous
  Country: CA (occurrence: CA)
  Receive Date: 20130628
  Receipt Date: 20150828
  Transmission Date: 20151125
  Serious: Yes (Death, Other)
  Sender: FDA-Public Use
  Company Number: CA-UCBSA-089660

PATIENT
  Age: 27 Year
  Sex: Female

DRUGS (18)
  1. VIMPAT [Suspect]
     Active Substance: LACOSAMIDE
     Indication: OFF LABEL USE
  2. ISOFLURANE. [Suspect]
     Active Substance: ISOFLURANE
     Indication: STATUS EPILEPTICUS
     Dosage: LIQUID INHALATION
  3. MAGNESIUM SULFATE. [Suspect]
     Active Substance: MAGNESIUM SULFATE
     Indication: STATUS EPILEPTICUS
     Dosage: UNK
  4. DEXAMETHASONE. [Suspect]
     Active Substance: DEXAMETHASONE
     Indication: STATUS EPILEPTICUS
     Dosage: UNK
  5. KEPPRA [Suspect]
     Active Substance: LEVETIRACETAM
     Indication: STATUS EPILEPTICUS
  6. IMMUNE GLOBULIN [Suspect]
     Active Substance: HUMAN IMMUNOGLOBULIN G
     Indication: PRODUCT USED FOR UNKNOWN INDICATION
     Dosage: SOLUTION INTRAVENOUS
     Route: 042
  7. MIDAZOLAM [Suspect]
     Active Substance: MIDAZOLAM\MIDAZOLAM HYDROCHLORIDE
     Indication: STATUS EPILEPTICUS
     Dosage: SOLUTION INTRAMUSCULAR
     Route: 030
  8. OXCARBAZEPINE. [Suspect]
     Active Substance: OXCARBAZEPINE
     Indication: PRODUCT USED FOR UNKNOWN INDICATION
  9. IMMUNE SERUM GLOBULIN [Suspect]
     Active Substance: IMMUNE GLOBULIN NOS
     Indication: PRODUCT USED FOR UNKNOWN INDICATION
     Dosage: SOLUTION INTRAMUSCULAR
     Route: 030
  10. MAGNESIUM [Suspect]
     Active Substance: MAGNESIUM
     Indication: PRODUCT USED FOR UNKNOWN INDICATION
  11. VIMPAT [Suspect]
     Active Substance: LACOSAMIDE
     Indication: STATUS EPILEPTICUS
  12. CLOBAZAM [Suspect]
     Active Substance: CLOBAZAM
     Indication: STATUS EPILEPTICUS
  13. KETAMINE HYDROCHLORIDE. [Suspect]
     Active Substance: KETAMINE HYDROCHLORIDE
     Indication: STATUS EPILEPTICUS
     Dosage: SOLUTION INTRAMUSCULAR
     Route: 030
  14. TOPIRAMATE. [Suspect]
     Active Substance: TOPIRAMATE
     Indication: STATUS EPILEPTICUS
  15. VALPROIC ACID. [Suspect]
     Active Substance: VALPROIC ACID
     Indication: STATUS EPILEPTICUS
  16. PENTOBARBITAL. [Suspect]
     Active Substance: PENTOBARBITAL
     Indication: STATUS EPILEPTICUS
     Dosage: UNK
  17. KEPPRA [Suspect]
     Active Substance: LEVETIRACETAM
     Indication: OFF LABEL USE
  18. PROPOFOL. [Suspect]
     Active Substance: PROPOFOL
     Indication: STATUS EPILEPTICUS
     Dosage: DOSAGE FORM: EMULSION

REACTIONS (13)
  - Arrhythmia [Fatal]
  - Gene mutation [Fatal]
  - Electrocardiogram QT prolonged [Fatal]
  - Mitochondrial DNA mutation [Fatal]
  - Metabolic acidosis [Fatal]
  - Blood lactic acid increased [Fatal]
  - Propofol infusion syndrome [Fatal]
  - Status epilepticus [Fatal]
  - Drug ineffective for unapproved indication [Fatal]
  - Blood gases abnormal [Fatal]
  - Shock [Fatal]
  - Blood creatine phosphokinase increased [Fatal]
  - Off label use [Unknown]
